FAERS Safety Report 6240692-8 (Version None)
Quarter: 2009Q2

REPORT INFORMATION
  Report Type: 
  Country: None (occurrence: None)
  Receive Date: 20090623
  Receipt Date: 20090128
  Transmission Date: 20091009
  Serious: No
  Sender: FDA-Public Use
  Company Number: US-ASTRAZENECA-2009UW02507

PATIENT
  Sex: Male

DRUGS (4)
  1. PULMICORT-100 [Suspect]
     Indication: CHRONIC OBSTRUCTIVE PULMONARY DISEASE
     Dosage: 180 MCG
     Route: 055
  2. PREDNISONE TAB [Suspect]
     Route: 065
     Dates: start: 20060101
  3. PREDNISONE TAB [Suspect]
     Route: 065
  4. PREDNISONE TAB [Suspect]
     Route: 065

REACTIONS (1)
  - WHEEZING [None]
